FAERS Safety Report 6133515-9 (Version None)
Quarter: 2009Q1

REPORT INFORMATION
  Report Type: 
  Country: None (occurrence: None)
  Receive Date: 20090325
  Receipt Date: 20090325
  Transmission Date: 20090719
  Serious: Yes (Hospitalization)
  Sender: FDA-Public Use
  Company Number: None

PATIENT
  Sex: Female
  Weight: 108 kg

DRUGS (9)
  1. CISPLATIN [Suspect]
     Dosage: 100 MG
  2. DOXORUBICIN HCL [Suspect]
     Dosage: 45 MG
  3. TAXOL [Suspect]
     Dosage: 319 MG
  4. NEULASTA [Suspect]
     Dosage: 6 MG
  5. COMPAZINE [Concomitant]
  6. LEXAPRO [Concomitant]
  7. METHENAMINE TAB [Concomitant]
  8. MORPHINE [Concomitant]
  9. ZOFRAN [Concomitant]

REACTIONS (15)
  - CONFUSIONAL STATE [None]
  - DIARRHOEA [None]
  - ESCHERICHIA INFECTION [None]
  - FATIGUE [None]
  - FLATULENCE [None]
  - HYPOPHAGIA [None]
  - NAUSEA [None]
  - PYELONEPHRITIS [None]
  - RASH PRURITIC [None]
  - RENAL FAILURE [None]
  - SEPSIS [None]
  - STAPHYLOCOCCAL SEPSIS [None]
  - TREMOR [None]
  - URINARY TRACT INFECTION [None]
  - VOMITING [None]
